FAERS Safety Report 16793689 (Version 3)
Quarter: 2019Q3

REPORT INFORMATION
  Report Type: Report from Study
  Country: ZA (occurrence: ZA)
  Receive Date: 20190911
  Receipt Date: 20190923
  Transmission Date: 20191005
  Serious: Yes (Hospitalization)
  Sender: FDA-Public Use
  Company Number: ZA-VIIV HEALTHCARE LIMITED-ZA2019GSK158714

PATIENT
  Age: 29 Year
  Sex: Female

DRUGS (3)
  1. EMTRICITABINE + TENOFOVIR [Concomitant]
     Active Substance: EMTRICITABINE\TENOFOVIR
     Indication: HIV INFECTION
     Dosage: 300/200 MG
     Dates: start: 20180319
  2. FOLIC ACID. [Concomitant]
     Active Substance: FOLIC ACID
     Dosage: 5 MG, UNK
     Dates: start: 20180319, end: 20180611
  3. DOLUTEGRAVIR [Suspect]
     Active Substance: DOLUTEGRAVIR
     Indication: HIV INFECTION
     Dosage: 50 MG, UNK
     Route: 048
     Dates: start: 20180319

REACTIONS (2)
  - Foetal monitoring abnormal [Recovered/Resolved]
  - Live birth [Unknown]

NARRATIVE: CASE EVENT DATE: 20180611
